FAERS Safety Report 7187081-X (Version None)
Quarter: 2010Q4

REPORT INFORMATION
  Report Type: 
  Country: None (occurrence: None)
  Receive Date: 20101222
  Receipt Date: 20100903
  Transmission Date: 20110411
  Serious: No
  Sender: FDA-Public Use
  Company Number: US-AMGEN-TCS420961

PATIENT

DRUGS (3)
  1. ENBREL [Suspect]
     Indication: PSORIATIC ARTHROPATHY
     Dosage: 50 MG, QWK
     Route: 058
  2. ALLOPURINOL [Concomitant]
     Dosage: UNK UNK, UNK
     Dates: start: 20040101
  3. SIMVASTATIN [Concomitant]
     Dosage: UNK UNK, UNK
     Dates: start: 20100501

REACTIONS (3)
  - ARTHRALGIA [None]
  - FEELING ABNORMAL [None]
  - PSORIATIC ARTHROPATHY [None]
